FAERS Safety Report 5167904-6 (Version None)
Quarter: 2006Q4

REPORT INFORMATION
  Report Type: 
  Country: None (occurrence: None)
  Receive Date: 20061208
  Receipt Date: 20061201
  Transmission Date: 20070319
  Serious: Yes (Hospitalization)
  Sender: FDA-Public Use
  Company Number: US-JNJFOC-20061201150

PATIENT
  Sex: Female

DRUGS (13)
  1. INFLIXIMAB [Suspect]
     Indication: RHEUMATOID ARTHRITIS
  2. ASACOL [Concomitant]
  3. FOLIC ACID [Concomitant]
  4. FOSAMAX [Concomitant]
  5. VITAMIN CAP [Concomitant]
  6. OXYCONTIN [Concomitant]
  7. PREMARIN [Concomitant]
  8. VASERETIC [Concomitant]
  9. ZOLOFT [Concomitant]
  10. METHOTREXATE [Concomitant]
  11. NEXIUM [Concomitant]
  12. CALCIUM+D [Concomitant]
  13. RESTASIS [Concomitant]
     Route: 047

REACTIONS (1)
  - HISTOPLASMOSIS [None]
